FAERS Safety Report 18589788 (Version 1)
Quarter: 2020Q4

REPORT INFORMATION
  Report Type: Spontaneous
  Country: US (occurrence: US)
  Receive Date: 20201205
  Receipt Date: 20201205
  Transmission Date: 20210114
  Serious: Yes (Other)
  Sender: FDA-Public Use
  Company Number: None

PATIENT
  Age: 20 Year
  Sex: Male
  Weight: 113.4 kg

DRUGS (5)
  1. RISPERDAL [Concomitant]
     Active Substance: RISPERIDONE
  2. ABILIFY [Suspect]
     Active Substance: ARIPIPRAZOLE
     Indication: BIPOLAR DISORDER
     Dosage: ?          OTHER DOSE:60 MG AM 30MG HS;?
     Route: 048
  3. GENERIC ARIPIPRAZOLE 60AM 30 HS [Suspect]
     Active Substance: ARIPIPRAZOLE
     Indication: BIPOLAR DISORDER
     Dosage: ?          OTHER DOSE:60MG AM 30MG HS;?
     Route: 048
     Dates: start: 20170208, end: 20170214
  4. TRILEPTAL [Concomitant]
     Active Substance: OXCARBAZEPINE
  5. FOCALIN [Concomitant]
     Active Substance: DEXMETHYLPHENIDATE HYDROCHLORIDE

REACTIONS (4)
  - Depression [None]
  - Product substitution issue [None]
  - Hallucination, auditory [None]
  - Drug level decreased [None]
